FAERS Safety Report 7448760-X (Version None)
Quarter: 2011Q2

REPORT INFORMATION
  Report Type: 
  Country: None (occurrence: None)
  Receive Date: 20110429
  Receipt Date: 20100729
  Transmission Date: 20111010
  Serious: No
  Sender: FDA-Public Use
  Company Number: US-ASTRAZENECA-2010SE35519

PATIENT
  Age: 74 Year
  Sex: Female
  Weight: 67.1 kg

DRUGS (4)
  1. NEXIUM [Suspect]
     Indication: GASTROOESOPHAGEAL REFLUX DISEASE
     Route: 048
  2. HEART MEDICINE [Concomitant]
     Indication: CARDIAC DISORDER
  3. NEURONTIN [Concomitant]
  4. HTN MEDICINE [Concomitant]
     Indication: HYPERTENSION

REACTIONS (2)
  - DYSPHONIA [None]
  - DIARRHOEA [None]
